FAERS Safety Report 21553965 (Version 1)
Quarter: 2022Q4

REPORT INFORMATION
  Report Type: Other
  Country: GB (occurrence: None)
  Receive Date: 20221104
  Receipt Date: 20221104
  Transmission Date: 20230113
  Serious: Yes (Other)
  Sender: FDA-Public Use
  Company Number: GB-ROCHE-3211590

PATIENT
  Sex: Female

DRUGS (1)
  1. OCRELIZUMAB [Suspect]
     Active Substance: OCRELIZUMAB
     Indication: Relapsing-remitting multiple sclerosis
     Route: 041
     Dates: start: 20221101, end: 20221101

REACTIONS (2)
  - Diabetes mellitus [Recovered/Resolved]
  - Glucose urine present [Recovered/Resolved]

NARRATIVE: CASE EVENT DATE: 20221101
